FAERS Safety Report 10135527 (Version 2)
Quarter: 2014Q3

REPORT INFORMATION
  Report Type: Spontaneous
  Country: IE (occurrence: IE)
  Receive Date: 20140428
  Receipt Date: 20140704
  Transmission Date: 20150326
  Serious: Yes (Hospitalization, Other)
  Sender: FDA-Public Use
  Company Number: PHHY2014IE050322

PATIENT
  Age: 66 Year
  Sex: Male

DRUGS (4)
  1. NILOTINIB [Suspect]
     Active Substance: NILOTINIB
     Indication: CHRONIC MYELOID LEUKAEMIA
     Dosage: 300 MG, QD
     Route: 048
     Dates: start: 201203, end: 20140417
  2. ASPIRIN. [Concomitant]
     Active Substance: ASPIRIN
     Dosage: 75 MG, QD
     Route: 048
     Dates: start: 20140222
  3. LANSOPRAZOLE. [Concomitant]
     Active Substance: LANSOPRAZOLE
     Dosage: 30 MG, QD
     Route: 048
     Dates: start: 20140222
  4. PARACETAMOL [Concomitant]
     Active Substance: ACETAMINOPHEN
     Dosage: 1 G, QD
     Route: 048

REACTIONS (4)
  - Muscular weakness [Recovered/Resolved with Sequelae]
  - Dysphagia [Recovered/Resolved]
  - Cerebral infarction [Recovered/Resolved with Sequelae]
  - Facial paresis [Recovered/Resolved]

NARRATIVE: CASE EVENT DATE: 20140221
